FAERS Safety Report 6601248-8 (Version None)
Quarter: 2010Q1

REPORT INFORMATION
  Report Type: 
  Country: None (occurrence: None)
  Receive Date: 20100225
  Receipt Date: 20100222
  Transmission Date: 20100710
  Serious: Yes (Hospitalization)
  Sender: FDA-Public Use
  Company Number: JP-SANOFI-AVENTIS-2010SA010430

PATIENT
  Age: 76 Year
  Sex: Female

DRUGS (9)
  1. ARAVA [Suspect]
     Indication: RHEUMATOID ARTHRITIS
     Route: 048
     Dates: start: 20080508, end: 20081007
  2. VIBRAMYCIN TABS [Concomitant]
     Indication: RHEUMATOID ARTHRITIS
     Route: 048
  3. PREDNISOLONE [Concomitant]
     Indication: RHEUMATOID ARTHRITIS
     Route: 048
  4. ALENDRONATE SODIUM [Concomitant]
     Indication: OSTEOPOROSIS
     Route: 048
  5. TOYOFAROL [Concomitant]
     Indication: OSTEOPOROSIS
     Route: 048
  6. LOXOPROFEN [Concomitant]
     Indication: RHEUMATOID ARTHRITIS
     Dosage: UP TO 180 MG PER DAY
     Route: 048
  7. MUCOSTA [Concomitant]
     Indication: GASTRITIS PROPHYLAXIS
     Dosage: UP TO 300 MG PER DAY
     Route: 048
  8. FOLIAMIN [Concomitant]
     Indication: ANAEMIA PROPHYLAXIS
     Route: 048
  9. BACTRAMIN [Concomitant]
     Indication: PROPHYLAXIS
     Route: 048

REACTIONS (4)
  - ANGINA PECTORIS [None]
  - DEHYDRATION [None]
  - INFECTION [None]
  - RENAL FAILURE CHRONIC [None]
